FAERS Safety Report 4417366-9 (Version None)
Quarter: 2004Q3

REPORT INFORMATION
  Report Type: 
  Country: None (occurrence: None)
  Receive Date: 20040802
  Receipt Date: 20040722
  Transmission Date: 20050211
  Serious: Yes (Hospitalization)
  Sender: FDA-Public Use
  Company Number: WAES 0407USA01817

PATIENT
  Age: 54 Year
  Sex: Female

DRUGS (4)
  1. TAB DECARON (DEXAMETHASONE) [Suspect]
     Dosage: PO
     Route: 048
  2. TEMOZOLOMIDE [Suspect]
  3. FRAGMIN [Suspect]
  4. LEVETIRACETAM [Suspect]

REACTIONS (4)
  - DIARRHOEA [None]
  - DUODENAL ULCER [None]
  - GASTRITIS [None]
  - RECTAL HAEMORRHAGE [None]
